FAERS Safety Report 4711805-1 (Version None)
Quarter: 2005Q3

REPORT INFORMATION
  Report Type: 
  Country: None (occurrence: None)
  Receive Date: 20050708
  Receipt Date: 20040907
  Transmission Date: 20060218
  Serious: Yes (Other)
  Sender: FDA-Public Use
  Company Number: 2004062604

PATIENT
  Sex: Male

DRUGS (1)
  1. NICOTROL [Suspect]
     Dosage: INHALATION
     Route: 055
     Dates: start: 20040301

REACTIONS (1)
  - DEPENDENCE [None]
